FAERS Safety Report 11189960 (Version 1)
Quarter: 2015Q2

REPORT INFORMATION
  Report Type: Spontaneous
  Country: US (occurrence: None)
  Receive Date: 20150612
  Receipt Date: 20150612
  Transmission Date: 20150821
  Serious: Yes (Other)
  Sender: FDA-Public Use
  Company Number: None

PATIENT
  Age: 31 Year
  Sex: Female
  Weight: 63.05 kg

DRUGS (4)
  1. IRON CHELATED [Concomitant]
  2. WELLBUTRIN [Concomitant]
     Active Substance: BUPROPION HYDROCHLORIDE
  3. ZOLOFT [Concomitant]
     Active Substance: SERTRALINE HYDROCHLORIDE
  4. MIRENA [Suspect]
     Active Substance: LEVONORGESTREL
     Dates: start: 20150601

REACTIONS (6)
  - Frustration [None]
  - Chills [None]
  - Throat tightness [None]
  - Gastrointestinal disorder [None]
  - Palpitations [None]
  - Anxiety [None]

NARRATIVE: CASE EVENT DATE: 20150601
